FAERS Safety Report 22763238 (Version 5)
Quarter: 2024Q1

REPORT INFORMATION
  Report Type: Report from Study
  Country: US (occurrence: US)
  Receive Date: 20230729
  Receipt Date: 20240105
  Transmission Date: 20240409
  Serious: Yes (Other)
  Sender: FDA-Public Use
  Company Number: US-002147023-NVSC2023US166284

PATIENT
  Age: 72 Year
  Sex: Female

DRUGS (2)
  1. PIQRAY [Suspect]
     Active Substance: ALPELISIB
     Indication: Hormone receptor positive HER2 negative breast cancer
     Dosage: UNK, QD
     Route: 048
     Dates: start: 202307
  2. PIQRAY [Suspect]
     Active Substance: ALPELISIB
     Dosage: 150 MG, EVERY OTHER DAY
     Route: 048

REACTIONS (3)
  - Renal impairment [Unknown]
  - Cystitis [Unknown]
  - Hyperglycaemia [Unknown]

NARRATIVE: CASE EVENT DATE: 20230701
